FAERS Safety Report 9734702 (Version 1)
Quarter: 2013Q4

REPORT INFORMATION
  Report Type: Spontaneous
  Country: CN (occurrence: CN)
  Receive Date: 20131206
  Receipt Date: 20131206
  Transmission Date: 20140711
  Serious: Yes (Other)
  Sender: FDA-Public Use
  Company Number: CN-ROCHE-1310558

PATIENT
  Age: 42 Year
  Sex: Male

DRUGS (10)
  1. RITUXIMAB [Suspect]
     Indication: MANTLE CELL LYMPHOMA
     Route: 065
     Dates: start: 201105, end: 201112
  2. RITUXIMAB [Suspect]
     Route: 065
     Dates: start: 20130411, end: 20130615
  3. CYCLOPHOSPHAMIDE [Suspect]
     Indication: MANTLE CELL LYMPHOMA
     Route: 065
     Dates: start: 201105, end: 201112
  4. CYTOSINE ARABINOSIDE [Suspect]
     Indication: MANTLE CELL LYMPHOMA
     Route: 065
     Dates: start: 201105, end: 201111
  5. CYTOSINE ARABINOSIDE [Suspect]
     Route: 065
     Dates: start: 20130411, end: 20130615
  6. METHOTREXATE [Suspect]
     Indication: MANTLE CELL LYMPHOMA
     Route: 065
     Dates: start: 201105, end: 201112
  7. BORTEZOMIB [Suspect]
     Indication: MANTLE CELL LYMPHOMA
     Route: 065
     Dates: start: 20130411, end: 20130615
  8. VINCRISTINE [Suspect]
     Indication: MANTLE CELL LYMPHOMA
     Route: 065
     Dates: start: 201105, end: 201112
  9. DOXORUBICINE [Suspect]
     Indication: MANTLE CELL LYMPHOMA
     Route: 065
     Dates: start: 201105, end: 201112
  10. DEXAMETHASONE [Suspect]
     Indication: MANTLE CELL LYMPHOMA
     Route: 065
     Dates: start: 201105, end: 201112

REACTIONS (3)
  - Bone marrow failure [Unknown]
  - Disease progression [Recovering/Resolving]
  - Febrile neutropenia [Unknown]
